FAERS Safety Report 7421132-X (Version None)
Quarter: 2011Q2

REPORT INFORMATION
  Report Type: 
  Country: None (occurrence: None)
  Receive Date: 20110408
  Receipt Date: 20110331
  Transmission Date: 20111010
  Serious: Yes (Death)
  Sender: FDA-Public Use
  Company Number: 2011039313

PATIENT
  Sex: Male

DRUGS (1)
  1. FRAGMIN [Suspect]
     Indication: THROMBOSIS
     Dosage: 5000 IU/0.2ML

REACTIONS (2)
  - HEPATIC NEOPLASM [None]
  - DISEASE PROGRESSION [None]
